FAERS Safety Report 11544791 (Version 4)
Quarter: 2016Q1

REPORT INFORMATION
  Report Type: Spontaneous
  Country: US (occurrence: US)
  Receive Date: 20150924
  Receipt Date: 20160107
  Transmission Date: 20160525
  Serious: Yes (Disabling)
  Sender: FDA-Public Use
  Company Number: US-CELGENEUS-USA-2015091214

PATIENT
  Age: 53 Year
  Sex: Male
  Weight: 108.96 kg

DRUGS (5)
  1. OTEZLA [Suspect]
     Active Substance: APREMILAST
     Indication: PSORIASIS
     Route: 048
     Dates: start: 20141222
  2. OTEZLA [Suspect]
     Active Substance: APREMILAST
     Indication: PSORIATIC ARTHROPATHY
     Route: 048
     Dates: start: 201501, end: 20150723
  3. COSENTYX [Concomitant]
     Active Substance: SECUKINUMAB
     Indication: PSORIASIS
     Route: 058
     Dates: start: 20151111
  4. OTEZLA [Suspect]
     Active Substance: APREMILAST
     Route: 048
     Dates: start: 20150901, end: 20151112
  5. COSENTYX [Concomitant]
     Active Substance: SECUKINUMAB
     Route: 058

REACTIONS (2)
  - Fatigue [Unknown]
  - Tendonitis [Recovered/Resolved]

NARRATIVE: CASE EVENT DATE: 20150701
